APPROVED DRUG PRODUCT: AMBRISENTAN
Active Ingredient: AMBRISENTAN
Strength: 5MG
Dosage Form/Route: TABLET;ORAL
Application: A216531 | Product #001 | TE Code: AB
Applicant: AUROBINDO PHARMA LTD
Approved: Jul 21, 2022 | RLD: No | RS: No | Type: RX